FAERS Safety Report 8769184 (Version 2)
Quarter: 2012Q4

REPORT INFORMATION
  Report Type: 
  Country: BR (occurrence: BR)
  Receive Date: 20120904
  Receipt Date: 20120907
  Transmission Date: 20130627
  Serious: Yes (Other)
  Sender: FDA-Public Use
  Company Number: BR-PFIZER INC-2012091020

PATIENT
  Age: 73 Year
  Sex: Female
  Weight: 65 kg

DRUGS (2)
  1. SUTENT [Suspect]
     Indication: RENAL CANCER
     Dosage: 50 mg, 1x/day (one tablet daily)
     Route: 048
     Dates: start: 20120326
  2. CHLORTHALIDONE [Concomitant]
     Dosage: 12.5 mg, 1x/day

REACTIONS (8)
  - Immunodeficiency [Unknown]
  - Blood pressure increased [Unknown]
  - Nausea [Unknown]
  - Decreased appetite [Not Recovered/Not Resolved]
  - Fatigue [Not Recovered/Not Resolved]
  - Muscular weakness [Unknown]
  - Abdominal pain upper [Unknown]
  - Wound [Unknown]
